FAERS Safety Report 4479981-6 (Version None)
Quarter: 2004Q3

REPORT INFORMATION
  Report Type: 
  Country: None (occurrence: None)
  Receive Date: 20040930
  Receipt Date: 20040827
  Transmission Date: 20050211
  Serious: No
  Sender: FDA-Public Use
  Company Number: 200410317BBE

PATIENT
  Sex: Male
  Weight: 70 kg

DRUGS (4)
  1. GAMUNEX [Suspect]
     Indication: CHRONIC OBSTRUCTIVE AIRWAYS DISEASE
     Dosage: SEE IMAGE
     Dates: start: 20040716
  2. GAMUNEX [Suspect]
     Indication: CHRONIC OBSTRUCTIVE AIRWAYS DISEASE
     Dosage: SEE IMAGE
     Dates: start: 20040716
  3. GAMUNEX [Suspect]
     Indication: CHRONIC OBSTRUCTIVE AIRWAYS DISEASE
     Dosage: SEE IMAGE
     Dates: start: 20040816
  4. GAMUNEX [Suspect]

REACTIONS (1)
  - HEPATIC ENZYME INCREASED [None]
